FAERS Safety Report 15497802 (Version 1)
Quarter: 2018Q4

REPORT INFORMATION
  Report Type: Spontaneous
  Country: US (occurrence: US)
  Receive Date: 20181014
  Receipt Date: 20181014
  Transmission Date: 20190205
  Serious: Yes (Other)
  Sender: FDA-Public Use
  Company Number: None

PATIENT
  Age: 39 Year
  Sex: Female
  Weight: 85.5 kg

DRUGS (2)
  1. DULOXETINE. [Suspect]
     Active Substance: DULOXETINE
     Indication: ARTHRALGIA
     Dosage: ?          QUANTITY:1 CAPSULE(S);?
     Route: 048
  2. DULOXETINE. [Suspect]
     Active Substance: DULOXETINE
     Indication: DEPRESSION
     Dosage: ?          QUANTITY:1 CAPSULE(S);?
     Route: 048

REACTIONS (14)
  - Confusional state [None]
  - Paraesthesia [None]
  - Suicidal ideation [None]
  - Tinnitus [None]
  - Ear pain [None]
  - Withdrawal syndrome [None]
  - Pain [None]
  - Nausea [None]
  - Fatigue [None]
  - Anxiety [None]
  - Hostility [None]
  - Irritability [None]
  - Disturbance in attention [None]
  - Headache [None]

NARRATIVE: CASE EVENT DATE: 20180922
